FAERS Safety Report 18067949 (Version 5)
Quarter: 2022Q1

REPORT INFORMATION
  Report Type: Report from Study
  Country: DE (occurrence: DE)
  Receive Date: 20200724
  Receipt Date: 20220131
  Transmission Date: 20220423
  Serious: Yes (Death, Hospitalization)
  Sender: FDA-Public Use
  Company Number: DE-PFIZER INC-2020273201

PATIENT
  Age: 63 Year
  Sex: Female
  Weight: 44 kg

DRUGS (8)
  1. PALBOCICLIB [Suspect]
     Active Substance: PALBOCICLIB
     Indication: Breast cancer
     Dosage: 125 MG, DAILY FROM DAY 1 TO DAY 21 EVERY 28-DAY CYCLE
     Route: 048
     Dates: start: 20200123, end: 20200610
  2. FULVESTRANT [Suspect]
     Active Substance: FULVESTRANT
     Indication: Breast cancer
     Dosage: 500 MG, DAY 1 OF 28-DAY CYCLE
     Dates: start: 20200123, end: 20200616
  3. FOSFOMYCIN TROMETHAMINE [Concomitant]
     Active Substance: FOSFOMYCIN TROMETHAMINE
     Indication: Cystitis
     Dosage: UNK
     Dates: start: 20200609, end: 20200609
  4. CEFUROXIME [Concomitant]
     Active Substance: CEFUROXIME
     Indication: Cystitis
     Dosage: UNK
     Dates: start: 20200618, end: 202007
  5. OSSOFORTIN FORTE [Concomitant]
     Indication: Prophylaxis
     Dosage: UNK
     Dates: start: 20200623, end: 202007
  6. PANTOPRAZOLE [Concomitant]
     Active Substance: PANTOPRAZOLE
     Indication: Nausea
     Dosage: UNK
     Dates: start: 20200623, end: 202007
  7. PREDNISOLONE [Concomitant]
     Active Substance: PREDNISOLONE
     Indication: Alveolitis
     Dosage: UNK
     Dates: start: 20200623, end: 20200628
  8. PREDNISOLONE [Concomitant]
     Active Substance: PREDNISOLONE
     Dosage: UNK
     Dates: start: 20200629, end: 202007

REACTIONS (1)
  - Dyspnoea [Fatal]

NARRATIVE: CASE EVENT DATE: 20200715
